FAERS Safety Report 15516748 (Version 1)
Quarter: 2018Q4

REPORT INFORMATION
  Report Type: Spontaneous
  Country: US (occurrence: US)
  Receive Date: 20181011
  Receipt Date: 20181011
  Transmission Date: 20190205
  Serious: Yes (Disabling, Other)
  Sender: FDA-Public Use
  Company Number: None

PATIENT
  Age: 61 Year
  Sex: Male
  Weight: 71.67 kg

DRUGS (3)
  1. TERBINAFINE HCL 250MG TAB [Suspect]
     Active Substance: TERBINAFINE HYDROCHLORIDE
     Indication: ONYCHOMYCOSIS
     Dosage: ?          QUANTITY:1 PILL;OTHER FREQUENCY:ONCE DAILY;?
     Route: 048
     Dates: start: 20150313, end: 20150615
  2. TRIAMCINOLONE ACETONIDE OINTMENT [Concomitant]
  3. METOPROLOL TARTRATE 25MG [Concomitant]
     Active Substance: METOPROLOL TARTRATE

REACTIONS (13)
  - Heart rate irregular [None]
  - Pyrexia [None]
  - Chills [None]
  - Decreased appetite [None]
  - Weight decreased [None]
  - Pruritus [None]
  - Eye swelling [None]
  - Pallor [None]
  - Night sweats [None]
  - Rash [None]
  - Prostatomegaly [None]
  - Dysuria [None]
  - Nausea [None]

NARRATIVE: CASE EVENT DATE: 20151209
